FAERS Safety Report 5511306-7 (Version None)
Quarter: 2007Q4

REPORT INFORMATION
  Report Type: 
  Country: None (occurrence: None)
  Receive Date: 20071109
  Receipt Date: 20070810
  Transmission Date: 20080405
  Serious: No
  Sender: FDA-Public Use
  Company Number: A0669508A

PATIENT
  Age: 63 Year
  Sex: Female

DRUGS (3)
  1. ALTABAX [Suspect]
     Route: 061
     Dates: start: 20070810, end: 20070810
  2. ANTIBIOTIC [Concomitant]
  3. COUMADIN [Concomitant]

REACTIONS (3)
  - APPLICATION SITE IRRITATION [None]
  - APPLICATION SITE PARAESTHESIA [None]
  - HYPERSENSITIVITY [None]
